FAERS Safety Report 5075708-8 (Version None)
Quarter: 2006Q3

REPORT INFORMATION
  Report Type: 
  Country: None (occurrence: None)
  Receive Date: 20060807
  Receipt Date: 20060626
  Transmission Date: 20061208
  Serious: Yes (Other)
  Sender: FDA-Public Use
  Company Number: 2566

PATIENT
  Sex: Male

DRUGS (1)
  1. AMNESTEEM [Suspect]
     Dosage: 40 MG BID PO
     Route: 048
     Dates: start: 20060302, end: 20060608

REACTIONS (6)
  - AGGRESSION [None]
  - DEPRESSED MOOD [None]
  - HOMICIDAL IDEATION [None]
  - IRRITABILITY [None]
  - MOOD ALTERED [None]
  - SUICIDAL IDEATION [None]
